FAERS Safety Report 15696762 (Version 1)
Quarter: 2018Q4

REPORT INFORMATION
  Report Type: Spontaneous
  Country: US (occurrence: US)
  Receive Date: 20181206
  Receipt Date: 20181206
  Transmission Date: 20190205
  Serious: No
  Sender: FDA-Public Use
  Company Number: US-PFIZER INC-2018494330

PATIENT
  Age: 58 Year
  Sex: Female
  Weight: 77.55 kg

DRUGS (6)
  1. VITAMIIN E [Concomitant]
     Dosage: UNK
  2. CALCIUM 500+D3 [Concomitant]
     Active Substance: CALCIUM CARBONATE\CHOLECALCIFEROL
     Dosage: UNK
  3. VITAMIN D [Concomitant]
     Active Substance: CHOLECALCIFEROL
     Dosage: UNK
  4. XELJANZ [Suspect]
     Active Substance: TOFACITINIB CITRATE
     Indication: RHEUMATOID ARTHRITIS
     Dosage: 5 MG, 2X/DAY
     Route: 048
  5. VITAMIN B12 [Concomitant]
     Active Substance: CYANOCOBALAMIN
     Dosage: 2500 UG, UNK
  6. BLACK COHOSH [CIMICIFUGA RACEMOSA] [Concomitant]
     Dosage: 160 MG, UNK

REACTIONS (1)
  - Drug ineffective [Unknown]
